FAERS Safety Report 18228471 (Version 1)
Quarter: 2020Q3

REPORT INFORMATION
  Report Type: Spontaneous
  Country: US (occurrence: US)
  Receive Date: 20200903
  Receipt Date: 20200903
  Transmission Date: 20201103
  Serious: Yes (Other)
  Sender: FDA-Public Use
  Company Number: US-FRESENIUS KABI-FK202009014

PATIENT
  Age: 7 Year
  Sex: Male

DRUGS (3)
  1. NO DRUG NAME [Concomitant]
     Active Substance: UNSPECIFIED INGREDIENT
     Indication: RHABDOMYOSARCOMA
     Route: 042
  2. FLUDARABINE [Suspect]
     Active Substance: FLUDARABINE PHOSPHATE
     Indication: RHABDOMYOSARCOMA
     Route: 065
  3. CYCLOPHOSPHAMIDE. [Suspect]
     Active Substance: CYCLOPHOSPHAMIDE
     Indication: RHABDOMYOSARCOMA
     Route: 065

REACTIONS (3)
  - Leukopenia [Unknown]
  - Neutropenia [Unknown]
  - Lymphopenia [Unknown]
